FAERS Safety Report 13010808 (Version 3)
Quarter: 2016Q4

REPORT INFORMATION
  Report Type: Report from Study
  Country: None (occurrence: SE)
  Receive Date: 20161208
  Receipt Date: 20161221
  Transmission Date: 20170207
  Serious: Yes (Other)
  Sender: FDA-Public Use
  Company Number: SE-ABBVIE-15P-150-1455278-00

PATIENT
  Age: 61 Year
  Sex: Male

DRUGS (3)
  1. DUODOPA [Suspect]
     Active Substance: CARBIDOPA\LEVODOPA
     Indication: PARKINSON^S DISEASE
     Dosage: MD 5.0ML, CD 3.2ML/H, ED: 1.8ML
     Route: 050
     Dates: start: 20100801
  2. DUODOPA [Suspect]
     Active Substance: CARBIDOPA\LEVODOPA
     Route: 050
  3. QUETIAPINE. [Concomitant]
     Active Substance: QUETIAPINE
     Indication: HALLUCINATION
     Dosage: EVENING

REACTIONS (9)
  - Stoma site erythema [Recovering/Resolving]
  - Device dislocation [Recovered/Resolved]
  - Stoma site induration [Recovering/Resolving]
  - Stoma site pain [Recovering/Resolving]
  - Excessive granulation tissue [Not Recovered/Not Resolved]
  - Stoma site discharge [Unknown]
  - Device connection issue [Unknown]
  - Stoma site pain [Not Recovered/Not Resolved]
  - Stoma site infection [Recovering/Resolving]

NARRATIVE: CASE EVENT DATE: 20150601
